FAERS Safety Report 4641696-9 (Version None)
Quarter: 2005Q2

REPORT INFORMATION
  Report Type: 
  Country: None (occurrence: None)
  Receive Date: 20050421
  Receipt Date: 20050405
  Transmission Date: 20051028
  Serious: Yes (Hospitalization, Disabling, Other)
  Sender: FDA-Public Use
  Company Number: 2004-0007111

PATIENT
  Age: 23 Year
  Sex: Female
  Weight: 61.2356 kg

DRUGS (8)
  1. VISTIDE [Suspect]
     Indication: CONDYLOMA ACUMINATUM
     Dosage: SEE IMAGE
     Route: 061
     Dates: start: 20030717, end: 20030721
  2. VISTIDE [Suspect]
     Indication: CONDYLOMA ACUMINATUM
     Dosage: SEE IMAGE
     Route: 061
     Dates: start: 20030828, end: 20030901
  3. VISTIDE [Suspect]
     Indication: CONDYLOMA ACUMINATUM
     Dosage: SEE IMAGE
     Route: 061
     Dates: start: 20031201, end: 20040401
  4. VISTIDE [Suspect]
     Indication: CONDYLOMA ACUMINATUM
     Dosage: SEE IMAGE
     Route: 061
     Dates: start: 20040518, end: 20040525
  5. VISTIDE [Suspect]
     Indication: CONDYLOMA ACUMINATUM
     Dosage: SEE IMAGE
     Route: 061
     Dates: start: 20040401
  6. IMURAN [Concomitant]
  7. PLAQUENIL [Concomitant]
  8. PREDNISONE [Concomitant]

REACTIONS (9)
  - DRUG TOXICITY [None]
  - GLOMERULOSCLEROSIS [None]
  - HAEMODIALYSIS [None]
  - PAIN [None]
  - RENAL FAILURE [None]
  - RENAL INTERSTITIAL FIBROSIS [None]
  - RENAL TUBULAR ATROPHY [None]
  - RENAL TUBULAR NECROSIS [None]
  - VAGINAL EXFOLIATION [None]
